FAERS Safety Report 16732403 (Version 2)
Quarter: 2019Q3

REPORT INFORMATION
  Report Type: Report from Study
  Country: US (occurrence: US)
  Receive Date: 20190822
  Receipt Date: 20190901
  Transmission Date: 20191005
  Serious: Yes (Life-Threatening)
  Sender: FDA-Public Use
  Company Number: US-HLSUS-2019-US-000789

PATIENT
  Sex: Female

DRUGS (1)
  1. CLOZARIL [Suspect]
     Active Substance: CLOZAPINE
     Route: 048

REACTIONS (6)
  - Ill-defined disorder [Unknown]
  - Weight decreased [Unknown]
  - Pyrexia [Unknown]
  - White blood cell count increased [Unknown]
  - Oral infection [Unknown]
  - Urinary tract infection [Unknown]
